FAERS Safety Report 7314553-7 (Version None)
Quarter: 2011Q1

REPORT INFORMATION
  Report Type: 
  Country: None (occurrence: None)
  Receive Date: 20110225
  Receipt Date: 20100930
  Transmission Date: 20110831
  Serious: No
  Sender: FDA-Public Use
  Company Number: US-MYLANLABS-2010S1017993

PATIENT
  Age: 22 Year
  Sex: Female

DRUGS (2)
  1. MULTIVITAMIN [Concomitant]
  2. AMNESTEEM [Suspect]
     Indication: ACNE
     Route: 048
     Dates: start: 10100612, end: 20100908

REACTIONS (1)
  - DEPRESSION [None]
